FAERS Safety Report 5492329-3 (Version None)
Quarter: 2007Q4

REPORT INFORMATION
  Report Type: 
  Country: None (occurrence: None)
  Receive Date: 20071022
  Receipt Date: 20071001
  Transmission Date: 20080405
  Serious: Yes (Death, Other)
  Sender: FDA-Public Use
  Company Number: US-AVENTIS-200715747US

PATIENT
  Age: 60 Year
  Sex: Female
  Weight: 124 kg

DRUGS (12)
  1. LOVENOX [Suspect]
     Route: 058
     Dates: start: 20070725, end: 20070725
  2. LOVENOX [Suspect]
     Route: 058
     Dates: start: 20070726, end: 20070726
  3. LOVENOX [Suspect]
     Route: 042
     Dates: start: 20070726, end: 20070726
  4. INTEGRIN                           /00216701/ [Suspect]
     Dosage: DOSE: UNK
     Route: 042
     Dates: start: 20070725, end: 20070725
  5. ZOLOFT [Concomitant]
  6. VERAPAMIL [Concomitant]
  7. TOPROL-XL [Concomitant]
  8. DITROPAN XL [Concomitant]
  9. PROTONIX [Concomitant]
  10. IBUPROFEN [Concomitant]
  11. ZOCOR [Concomitant]
  12. NITROGLYCERIN [Concomitant]
     Indication: PAIN
     Dosage: DOSE: UNK
     Route: 060

REACTIONS (4)
  - CARDIAC ARREST [None]
  - CATHETER THROMBOSIS [None]
  - DRUG INEFFECTIVE [None]
  - TROPONIN INCREASED [None]
